FAERS Safety Report 9473010 (Version 4)
Quarter: 2014Q1

REPORT INFORMATION
  Report Type: Spontaneous
  Country: US (occurrence: US)
  Receive Date: 20130823
  Receipt Date: 20140210
  Transmission Date: 20141002
  Serious: Yes (Hospitalization)
  Sender: FDA-Public Use
  Company Number: US-UCBSA-095749

PATIENT
  Age: 47 Year
  Sex: Female
  Weight: 68.03 kg

DRUGS (15)
  1. CIMZIA [Suspect]
     Indication: CROHN^S DISEASE
     Dates: start: 20120711, end: 201311
  2. POTASSIUM [Concomitant]
     Indication: SUPPLEMENTATION THERAPY
     Dosage: 20 MEQ; DAILY DOSE = 40 MEQ; TAKING FIVE YEARS
     Route: 048
  3. MAGNESIUM [Concomitant]
     Indication: SUPPLEMENTATION THERAPY
     Route: 048
  4. FOLIC ACID [Concomitant]
     Indication: NUTRITIONAL SUPPLEMENTATION
     Route: 048
  5. EMURAN [Concomitant]
     Indication: CHEMOTHERAPY
     Route: 048
  6. LYRICA [Concomitant]
     Indication: NEUROPATHY PERIPHERAL
     Dosage: BEEN TAKING APPROXIMATELY FOR THREE YEARS
     Route: 048
  7. TRICOR [Concomitant]
     Indication: PRODUCT USED FOR UNKNOWN INDICATION
     Route: 048
  8. PREMARIN [Concomitant]
     Route: 048
  9. EFFEXOR [Concomitant]
     Indication: DEPRESSION
     Route: 048
  10. PERCOCET [Concomitant]
     Indication: PAIN
     Dosage: 5-325 MG
     Route: 048
  11. AMBIEN [Concomitant]
     Indication: INSOMNIA
     Dosage: AT NIGHT
     Route: 048
  12. PHENERGAN [Concomitant]
     Indication: NAUSEA
     Route: 048
  13. LAMOTIL [Concomitant]
     Indication: DIARRHOEA
     Dosage: TAKE ONE TO TWO ONE HALF HOUR BEFORE MEALS - DOES NOT PROVIDE RELIEF. RARELY USES
     Route: 048
  14. LANTUS PEN [Concomitant]
     Indication: DIABETES MELLITUS
     Dosage: 3 ML PREFILLED WITH 24 UNITS; IN AM QD
     Route: 058
  15. HUMULOG U-100 [Concomitant]
     Indication: DIABETES MELLITUS
     Dosage: BEFORE MEALS
     Route: 058

REACTIONS (9)
  - Dehydration [Recovering/Resolving]
  - Diarrhoea [Not Recovered/Not Resolved]
  - Blood magnesium decreased [Not Recovered/Not Resolved]
  - Nausea [Unknown]
  - Asthenia [Unknown]
  - Night sweats [Unknown]
  - Abdominal pain lower [Unknown]
  - Back pain [Unknown]
  - Inappropriate schedule of drug administration [Recovered/Resolved]
